FAERS Safety Report 4620076-6 (Version None)
Quarter: 2005Q1

REPORT INFORMATION
  Report Type: 
  Country: None (occurrence: None)
  Receive Date: 20050323
  Receipt Date: 20050323
  Transmission Date: 20050727
  Serious: No
  Sender: FDA-Public Use
  Company Number: None

PATIENT
  Age: 43 Year
  Sex: Female
  Weight: 62.5964 kg

DRUGS (3)
  1. TEGRETOL [Suspect]
     Indication: TRIGEMINAL NEURALGIA
     Dosage: 2  BID  ORAL
     Route: 048
     Dates: start: 20050225, end: 20050319
  2. ZOVIRAX [Concomitant]
  3. IMITREX [Concomitant]

REACTIONS (8)
  - CHILLS [None]
  - CHROMATURIA [None]
  - FATIGUE [None]
  - INFLUENZA LIKE ILLNESS [None]
  - PAIN [None]
  - PYREXIA [None]
  - STOMATITIS [None]
  - SWOLLEN TONGUE [None]
